FAERS Safety Report 5264304-5 (Version None)
Quarter: 2007Q1

REPORT INFORMATION
  Report Type: 
  Country: None (occurrence: None)
  Receive Date: 20070309
  Receipt Date: 20061002
  Transmission Date: 20070707
  Serious: Yes (Other)
  Sender: FDA-Public Use
  Company Number: 2006SP003633

PATIENT
  Sex: Male

DRUGS (3)
  1. AERIUS (DESLORATADINE)  (DESLORATADINE) [Suspect]
     Indication: RHINITIS ALLERGIC
     Dosage: SEE IMAGE
     Route: 048
     Dates: start: 20060601, end: 20060917
  2. AERIUS (DESLORATADINE)  (DESLORATADINE) [Suspect]
     Indication: RHINITIS ALLERGIC
     Dosage: SEE IMAGE
     Route: 048
     Dates: start: 20070102
  3. CONVULEX /00228501/ [Concomitant]

REACTIONS (2)
  - CONVULSION [None]
  - HICCUPS [None]
